FAERS Safety Report 23231948 (Version 1)
Quarter: 2023Q4

REPORT INFORMATION
  Report Type: Spontaneous
  Country: US (occurrence: None)
  Receive Date: 20231126
  Receipt Date: 20231126
  Transmission Date: 20240110
  Serious: Yes (Other)
  Sender: FDA-Public Use
  Company Number: None

PATIENT
  Age: 44 Year
  Sex: Female
  Weight: 129.15 kg

DRUGS (1)
  1. YUSIMRY [Suspect]
     Active Substance: ADALIMUMAB-AQVH
     Indication: Product used for unknown indication

REACTIONS (6)
  - Haematochezia [None]
  - Abdominal pain upper [None]
  - Headache [None]
  - Pruritus [None]
  - Skin discolouration [None]
  - Haemorrhage [None]

NARRATIVE: CASE EVENT DATE: 20131030
